FAERS Safety Report 8888871 (Version 2)
Quarter: 2012Q4

REPORT INFORMATION
  Report Type: Report from Study
  Country: US (occurrence: US)
  Receive Date: 20121106
  Receipt Date: 20121221
  Transmission Date: 20130627
  Serious: Yes (Other)
  Sender: FDA-Public Use
  Company Number: US-ABBOTT-12P-163-1003581-00

PATIENT
  Sex: Male

DRUGS (3)
  1. CREON [Suspect]
     Indication: OBESITY SURGERY
     Dosage: 1 pill per meal/take with each meal
     Dates: start: 2010, end: 20121026
  2. PRILOSEC [Concomitant]
     Indication: GASTROOESOPHAGEAL REFLUX DISEASE
  3. NEBULIZER MACHINE [Concomitant]
     Indication: ASTHMA

REACTIONS (3)
  - Concussion [Recovered/Resolved]
  - Blood glucose decreased [Recovered/Resolved]
  - Loss of consciousness [Recovered/Resolved]
